FAERS Safety Report 13571683 (Version 1)
Quarter: 2017Q2

REPORT INFORMATION
  Report Type: Spontaneous
  Country: US (occurrence: US)
  Receive Date: 20170522
  Receipt Date: 20170522
  Transmission Date: 20170830
  Serious: Yes (Hospitalization)
  Sender: FDA-Public Use
  Company Number: None

PATIENT
  Age: 88 Year
  Sex: Male
  Weight: 62 kg

DRUGS (1)
  1. PHENAZOPYRIDINE. [Suspect]
     Active Substance: PHENAZOPYRIDINE
     Indication: PROSTATITIS
     Route: 048
     Dates: start: 20160218, end: 20160305

REACTIONS (5)
  - Diarrhoea [None]
  - Hypophagia [None]
  - Dizziness [None]
  - Tachycardia [None]
  - Confusional state [None]

NARRATIVE: CASE EVENT DATE: 20160304
